FAERS Safety Report 10143107 (Version 1)
Quarter: 2014Q2

REPORT INFORMATION
  Report Type: Report from Study
  Country: US (occurrence: US)
  Receive Date: 20140430
  Receipt Date: 20140430
  Transmission Date: 20141212
  Serious: Yes (Hospitalization)
  Sender: FDA-Public Use
  Company Number: US-IAC KOREA XML-USA-2014-0113222

PATIENT
  Sex: Female

DRUGS (2)
  1. OXY CR TAB [Suspect]
     Indication: NEUROPATHY PERIPHERAL
     Dosage: 160 MG, BID
     Route: 048
  2. OXY CR TAB [Suspect]
     Indication: BACK PAIN

REACTIONS (3)
  - Skin ulcer [Unknown]
  - Adverse drug reaction [Unknown]
  - Arterial occlusive disease [Unknown]
